FAERS Safety Report 7251465-1 (Version None)
Quarter: 2011Q1

REPORT INFORMATION
  Report Type: 
  Country: None (occurrence: None)
  Receive Date: 20110128
  Receipt Date: 20110117
  Transmission Date: 20110831
  Serious: Yes (Hospitalization)
  Sender: FDA-Public Use
  Company Number: PHHY2011IT04933

PATIENT
  Sex: Female

DRUGS (1)
  1. LOPRESSOR [Suspect]
     Dosage: 300 MG, UNK
     Route: 048
     Dates: start: 20110107, end: 20110107

REACTIONS (2)
  - ANXIETY [None]
  - ACCIDENTAL EXPOSURE [None]
